FAERS Safety Report 18626595 (Version 1)
Quarter: 2020Q4

REPORT INFORMATION
  Report Type: Spontaneous
  Country: US (occurrence: US)
  Receive Date: 20201217
  Receipt Date: 20201217
  Transmission Date: 20210114
  Serious: Yes (Hospitalization, Other)
  Sender: FDA-Public Use
  Company Number: US-SCIEGEN-2020SCILIT00488

PATIENT
  Age: 75 Year
  Sex: Male
  Weight: 75 kg

DRUGS (19)
  1. DONEPEZIL HYDROCHLORIDE TABLETS [Suspect]
     Active Substance: DONEPEZIL HYDROCHLORIDE
     Indication: AGGRESSION
  2. DIVALPROEX SODIUM. [Suspect]
     Active Substance: DIVALPROEX SODIUM
     Indication: MOOD SWINGS
     Route: 065
     Dates: start: 20180103
  3. PRAVASTATIN. [Concomitant]
     Active Substance: PRAVASTATIN
     Indication: PRODUCT USED FOR UNKNOWN INDICATION
     Route: 065
  4. DIVALPROEX SODIUM. [Suspect]
     Active Substance: DIVALPROEX SODIUM
     Indication: MIGRAINE PROPHYLAXIS
     Route: 065
     Dates: start: 201605
  5. INSULIN GLARGINE [Concomitant]
     Active Substance: INSULIN GLARGINE
     Indication: PRODUCT USED FOR UNKNOWN INDICATION
     Dosage: 15 UNIT ONCE/DAY
     Route: 065
  6. CYPROHEPTADIN [Interacting]
     Active Substance: CYPROHEPTADINE HYDROCHLORIDE
     Route: 065
     Dates: start: 20180215
  7. MIDAZOLAM. [Interacting]
     Active Substance: MIDAZOLAM
     Indication: SEROTONIN SYNDROME
     Route: 065
  8. QUETIAPINE. [Suspect]
     Active Substance: QUETIAPINE
     Route: 065
  9. MEMANTINE. [Suspect]
     Active Substance: MEMANTINE
     Indication: PRODUCT USED FOR UNKNOWN INDICATION
     Route: 065
  10. MEMANTINE. [Suspect]
     Active Substance: MEMANTINE
     Route: 065
     Dates: start: 20180221
  11. VENLAFAXINE [Suspect]
     Active Substance: VENLAFAXINE HYDROCHLORIDE
     Indication: DEPRESSIVE SYMPTOM
     Route: 065
     Dates: start: 201607
  12. TAMSULOSIN [Concomitant]
     Active Substance: TAMSULOSIN
     Route: 065
  13. METFORMIN [Concomitant]
     Active Substance: METFORMIN HYDROCHLORIDE
     Indication: PRODUCT USED FOR UNKNOWN INDICATION
     Route: 065
  14. MELATONIN [Suspect]
     Active Substance: MELATONIN
     Indication: PRODUCT USED FOR UNKNOWN INDICATION
     Route: 065
  15. MAGNESIUM OXIDE. [Concomitant]
     Active Substance: MAGNESIUM OXIDE
     Indication: PRODUCT USED FOR UNKNOWN INDICATION
     Route: 065
  16. QUETIAPINE. [Suspect]
     Active Substance: QUETIAPINE
     Indication: AGGRESSION
     Route: 065
  17. CYPROHEPTADIN [Interacting]
     Active Substance: CYPROHEPTADINE HYDROCHLORIDE
     Indication: SEROTONIN SYNDROME
     Route: 065
  18. DONEPEZIL HYDROCHLORIDE TABLETS [Suspect]
     Active Substance: DONEPEZIL HYDROCHLORIDE
     Indication: AGITATION
     Route: 065
  19. TRAZODONE [Suspect]
     Active Substance: TRAZODONE HYDROCHLORIDE
     Indication: DEPRESSION
     Dosage: 2-3 TIMES/WEEK
     Route: 065

REACTIONS (1)
  - Serotonin syndrome [Recovered/Resolved]
